FAERS Safety Report 12496708 (Version 2)
Quarter: 2016Q3

REPORT INFORMATION
  Report Type: Spontaneous
  Country: IT (occurrence: DE)
  Receive Date: 20160624
  Receipt Date: 20160805
  Transmission Date: 20161109
  Serious: Yes (Hospitalization)
  Sender: FDA-Public Use
  Company Number: DE-FRI-1000085540

PATIENT
  Age: 74 Year
  Sex: Female
  Weight: 62 kg

DRUGS (8)
  1. UNIMAX [Concomitant]
     Dosage: 1 PROLONGED-RELEASE TABLET TWICE DAILY
  2. TORASEMID [Concomitant]
     Active Substance: TORSEMIDE
     Dosage: 20 MG ONCE DAILY
  3. MARCUMAR [Concomitant]
     Active Substance: PHENPROCOUMON
  4. MONUROL [Suspect]
     Active Substance: FOSFOMYCIN TROMETHAMINE
     Indication: PRODUCT USED FOR UNKNOWN INDICATION
     Dosage: 3000 MG
     Route: 065
     Dates: start: 20160422
  5. DIGIMERCK [Suspect]
     Active Substance: DIGITOXIN
     Indication: PRODUCT USED FOR UNKNOWN INDICATION
     Dosage: 0.05 MG
     Route: 065
     Dates: start: 20160502
  6. PANTOZOL [Concomitant]
     Active Substance: PANTOPRAZOLE SODIUM
  7. VERAPAMIL [Concomitant]
     Active Substance: VERAPAMIL HYDROCHLORIDE
     Dosage: 240 MG TWICE DAILY
  8. THYRONAJOD [Concomitant]
     Active Substance: LEVOTHYROXINE SODIUM\POTASSIUM IODIDE

REACTIONS (3)
  - Electrocardiogram T wave inversion [Unknown]
  - Myocardial infarction [Unknown]
  - Atrial fibrillation [Recovered/Resolved]

NARRATIVE: CASE EVENT DATE: 20160503
